FAERS Safety Report 9281259 (Version 1)
Quarter: 2013Q2

REPORT INFORMATION
  Report Type: Spontaneous
  Country: US (occurrence: None)
  Receive Date: 20130508
  Receipt Date: 20130508
  Transmission Date: 20140414
  Serious: Yes (Hospitalization)
  Sender: FDA-Public Use
  Company Number: None

PATIENT
  Age: 60 Year
  Sex: Female
  Weight: 84 kg

DRUGS (10)
  1. RITUXAN [Suspect]
     Indication: OFF LABEL USE
     Dosage: 650 MG SINGLE DOSE IV DRIP
     Route: 041
     Dates: start: 20130418, end: 20130418
  2. RITUXAN [Suspect]
     Indication: THROMBOTIC THROMBOCYTOPENIC PURPURA
     Dosage: 650 MG SINGLE DOSE IV DRIP
     Route: 041
     Dates: start: 20130418, end: 20130418
  3. RITUXIMAB [Suspect]
  4. DOCUSATE SODIUM [Concomitant]
  5. METOPROLOL [Concomitant]
  6. TARTRATE [Concomitant]
  7. FOLIC ACID [Concomitant]
  8. TRICOR [Concomitant]
  9. FUROSEMIDE [Concomitant]
  10. CEFEPIME [Concomitant]

REACTIONS (4)
  - Off label use [None]
  - Heart rate decreased [None]
  - Convulsion [None]
  - Infusion related reaction [None]
